FAERS Safety Report 9335207 (Version 1)
Quarter: 2013Q2

REPORT INFORMATION
  Report Type: Spontaneous
  Country: US (occurrence: US)
  Receive Date: 20130606
  Receipt Date: 20130606
  Transmission Date: 20140414
  Serious: Yes (Other)
  Sender: FDA-Public Use
  Company Number: US-MYLANLABS-2013S1011527

PATIENT
  Age: 75 Year
  Sex: Female

DRUGS (1)
  1. DOXYCYCLINE [Suspect]
     Indication: CELLULITIS
     Route: 048

REACTIONS (3)
  - Burns first degree [Recovered/Resolved]
  - Burns second degree [Recovered/Resolved]
  - Photosensitivity reaction [Recovered/Resolved]
